FAERS Safety Report 11714502 (Version 2)
Quarter: 2016Q1

REPORT INFORMATION
  Report Type: Spontaneous
  Country: JP (occurrence: JP)
  Receive Date: 20151109
  Receipt Date: 20160126
  Transmission Date: 20160525
  Serious: Yes (Death, Disabling)
  Sender: FDA-Public Use
  Company Number: JP-PFIZER INC-2015378837

PATIENT
  Age: 66 Year
  Sex: Female
  Weight: 42 kg

DRUGS (16)
  1. ANAEMETRO [Suspect]
     Active Substance: METRONIDAZOLE
     Indication: INFECTION
     Dosage: 1500 MG, DAILY
     Route: 041
     Dates: start: 20150927, end: 20150928
  2. 5-FU /00098801/ [Suspect]
     Active Substance: FLUOROURACIL
     Indication: RECTAL CANCER
     Dosage: 530 MG, DAILY
     Route: 042
     Dates: start: 20150914, end: 20150914
  3. ZOSYN [Concomitant]
     Active Substance: PIPERACILLIN SODIUM\TAZOBACTAM SODIUM
     Dosage: 4.5 G, 4X/DAY
     Dates: start: 20150930
  4. CEFTRIAXONE SODIUM. [Suspect]
     Active Substance: CEFTRIAXONE SODIUM
     Indication: INFECTION
     Dosage: 2 G, DAILY
     Route: 041
     Dates: start: 20150927, end: 20150929
  5. DEXART [Concomitant]
     Active Substance: DEXAMETHASONE SODIUM PHOSPHATE
     Dosage: 8 MG, UNK
  6. NEORESTAR [Concomitant]
     Dosage: 10 MG, UNK
  7. LEVOFOLINATE [Concomitant]
     Active Substance: LEVOLEUCOVORIN CALCIUM
     Dosage: 25 MG, UNK
  8. ZOSYN [Concomitant]
     Active Substance: PIPERACILLIN SODIUM\TAZOBACTAM SODIUM
     Dosage: UNK
     Dates: start: 20150921, end: 20150926
  9. 5-FU /00098801/ [Suspect]
     Active Substance: FLUOROURACIL
     Dosage: 3200 MG, UNK
     Route: 042
     Dates: start: 20150914, end: 20150916
  10. DEXART [Concomitant]
     Active Substance: DEXAMETHASONE SODIUM PHOSPHATE
     Dosage: 2 MG, UNK
  11. GRANISETRON [Concomitant]
     Active Substance: GRANISETRON
     Dosage: 3 MG, UNK
  12. LEVOFOLINATE [Concomitant]
     Active Substance: LEVOLEUCOVORIN CALCIUM
     Dosage: 100 MG, UNK
  13. FERROUS CITRATE SODIUM [Concomitant]
     Dosage: 50 MG, UNK
  14. ELPLAT [Concomitant]
     Active Substance: OXALIPLATIN
     Dosage: UNK
  15. GASTER [Concomitant]
     Active Substance: FAMOTIDINE
     Dosage: 20 MG, UNK
  16. ZOLPIDEM [Concomitant]
     Active Substance: ZOLPIDEM\ZOLPIDEM TARTRATE
     Dosage: 5 MG, UNK

REACTIONS (3)
  - Altered state of consciousness [Fatal]
  - Optic neuritis [Not Recovered/Not Resolved]
  - Leukoencephalopathy [Fatal]

NARRATIVE: CASE EVENT DATE: 20150928
